FAERS Safety Report 10665109 (Version 1)
Quarter: 2014Q4

REPORT INFORMATION
  Report Type: Spontaneous
  Country: US (occurrence: US)
  Receive Date: 20141219
  Receipt Date: 20141219
  Transmission Date: 20150529
  Serious: No
  Sender: FDA-Public Use
  Company Number: US-009507513-1412USA008506

PATIENT
  Age: 15 Year
  Sex: Female
  Weight: 56.69 kg

DRUGS (1)
  1. NEXPLANON [Suspect]
     Active Substance: ETONOGESTREL
     Indication: CONTRACEPTION
     Dosage: 1 DF, 1 ROD/ 3 YEARS
     Route: 059
     Dates: start: 201310

REACTIONS (1)
  - Amenorrhoea [Unknown]

NARRATIVE: CASE EVENT DATE: 201310
